FAERS Safety Report 15125477 (Version 1)
Quarter: 2018Q3

REPORT INFORMATION
  Report Type: Spontaneous
  Country: GB (occurrence: GB)
  Receive Date: 20180710
  Receipt Date: 20180710
  Transmission Date: 20181010
  Serious: Yes (Other)
  Sender: FDA-Public Use
  Company Number: GB-SA-2018SA171972

PATIENT
  Age: 54 Year
  Sex: Female
  Weight: 78.92 kg

DRUGS (5)
  1. PREDNISOLONE. [Concomitant]
     Active Substance: PREDNISOLONE
  2. VISCOTEARS [Concomitant]
     Active Substance: CARBOMER
  3. FEXOFENADINE HYDROCHLORIDE. [Suspect]
     Active Substance: FEXOFENADINE HYDROCHLORIDE
     Indication: HYPERSENSITIVITY
     Route: 048
     Dates: start: 201706, end: 20180605
  4. CELECOXIB. [Concomitant]
     Active Substance: CELECOXIB
  5. HYDROXOCOBALAMIN [Concomitant]
     Active Substance: HYDROXOCOBALAMIN

REACTIONS (5)
  - Increased appetite [Unknown]
  - Pruritus generalised [Not Recovered/Not Resolved]
  - Back pain [Unknown]
  - Withdrawal syndrome [Unknown]
  - Skin burning sensation [Not Recovered/Not Resolved]

NARRATIVE: CASE EVENT DATE: 20180606
